FAERS Safety Report 11032031 (Version 1)
Quarter: 2015Q2

REPORT INFORMATION
  Report Type: Spontaneous
  Country: FR (occurrence: FR)
  Receive Date: 20150415
  Receipt Date: 20150415
  Transmission Date: 20150821
  Serious: Yes (Hospitalization)
  Sender: FDA-Public Use
  Company Number: FR-ASTRAZENECA-2015SE33813

PATIENT
  Age: 26371 Day
  Sex: Male

DRUGS (4)
  1. KARDEGIC [Suspect]
     Active Substance: ASPIRIN LYSINE
     Indication: STENT PLACEMENT
     Route: 048
  2. KARDEGIC [Suspect]
     Active Substance: ASPIRIN LYSINE
     Indication: CORONARY ARTERY DISEASE
     Route: 048
  3. BRILIQUE [Suspect]
     Active Substance: TICAGRELOR
     Indication: CORONARY ARTERY DISEASE
     Route: 048
     Dates: end: 201310
  4. BRILIQUE [Suspect]
     Active Substance: TICAGRELOR
     Indication: STENT PLACEMENT
     Route: 048
     Dates: end: 201310

REACTIONS (2)
  - Haemorrhage intracranial [Unknown]
  - Fall [Unknown]

NARRATIVE: CASE EVENT DATE: 20131007
